FAERS Safety Report 13567710 (Version 5)
Quarter: 2018Q4

REPORT INFORMATION
  Report Type: Spontaneous
  Country: US (occurrence: US)
  Receive Date: 20170522
  Receipt Date: 20181219
  Transmission Date: 20190204
  Serious: Yes (Other)
  Sender: FDA-Public Use
  Company Number: US-ASTRAZENECA-2008BM01509

PATIENT
  Age: 774 Month
  Sex: Female
  Weight: 93 kg

DRUGS (6)
  1. LEVOTHYROXINE. [Concomitant]
     Active Substance: LEVOTHYROXINE
     Indication: THYROID DISORDER
  2. BYETTA [Suspect]
     Active Substance: EXENATIDE
     Indication: TYPE 2 DIABETES MELLITUS
     Route: 058
     Dates: start: 20070118
  3. VALSARTAN. [Concomitant]
     Active Substance: VALSARTAN
     Indication: BLOOD PRESSURE ABNORMAL
     Dosage: 80/12.5 DAILY
  4. METFORMIN [Concomitant]
     Active Substance: METFORMIN HYDROCHLORIDE
     Indication: DIABETES MELLITUS
  5. BYDUREON [Suspect]
     Active Substance: EXENATIDE
     Indication: TYPE 2 DIABETES MELLITUS
     Route: 058
  6. BYETTA [Suspect]
     Active Substance: EXENATIDE
     Indication: TYPE 2 DIABETES MELLITUS
     Route: 058
     Dates: start: 20070102, end: 200701

REACTIONS (14)
  - Injection site pain [Unknown]
  - Uterine cancer [Unknown]
  - Injection site erosion [Unknown]
  - Nasopharyngitis [Recovering/Resolving]
  - Circumstance or information capable of leading to medication error [Unknown]
  - Injection site bruising [Unknown]
  - Weight decreased [Unknown]
  - Wrong technique in product usage process [Unknown]
  - Device issue [Unknown]
  - Arthritis [Unknown]
  - Device leakage [Unknown]
  - Injection site haemorrhage [Unknown]
  - Product packaging quantity issue [Unknown]
  - Underdose [Unknown]

NARRATIVE: CASE EVENT DATE: 200701
